FAERS Safety Report 6583051-0 (Version None)
Quarter: 2010Q1

REPORT INFORMATION
  Report Type: 
  Country: None (occurrence: None)
  Receive Date: 20100216
  Receipt Date: 20100203
  Transmission Date: 20100710
  Serious: Yes (Hospitalization)
  Sender: FDA-Public Use
  Company Number: JP-ROCHE-681043

PATIENT
  Sex: Female
  Weight: 49 kg

DRUGS (8)
  1. AVASTIN [Suspect]
     Indication: RECTAL CANCER
     Route: 041
     Dates: start: 20100105, end: 20100105
  2. DEXART [Suspect]
     Indication: RECTAL CANCER
     Route: 041
     Dates: start: 20100105, end: 20100112
  3. ELPLAT [Concomitant]
     Route: 041
     Dates: start: 20100105, end: 20100105
  4. 5-FU [Concomitant]
     Route: 040
     Dates: start: 20100105, end: 20100105
  5. 5-FU [Concomitant]
     Route: 041
     Dates: start: 20100105, end: 20100107
  6. LEVOFOLINATE [Concomitant]
     Route: 041
     Dates: start: 20100105, end: 20100105
  7. KYTRIL [Concomitant]
     Route: 041
     Dates: start: 20100105, end: 20100107
  8. PRIMPERAN TAB [Concomitant]
     Route: 041
     Dates: start: 20100107, end: 20100112

REACTIONS (2)
  - DUODENAL ULCER [None]
  - GASTRIC ULCER [None]
